FAERS Safety Report 18125899 (Version 1)
Quarter: 2020Q3

REPORT INFORMATION
  Report Type: Spontaneous
  Country: JP (occurrence: JP)
  Receive Date: 20200807
  Receipt Date: 20200807
  Transmission Date: 20201103
  Serious: Yes (Death, Other)
  Sender: FDA-Public Use
  Company Number: JP-ASTRAZENECA-2020SE99471

PATIENT
  Sex: Male

DRUGS (1)
  1. TAGRISSO [Suspect]
     Active Substance: OSIMERTINIB
     Indication: NON-SMALL CELL LUNG CANCER
     Route: 048
     Dates: start: 201803, end: 20200131

REACTIONS (5)
  - Gait disturbance [Unknown]
  - Internal haemorrhage [Unknown]
  - Peripheral artery thrombosis [Fatal]
  - Meningitis [Unknown]
  - Arterial occlusive disease [Unknown]
